FAERS Safety Report 4597481-X (Version None)
Quarter: 2005Q1

REPORT INFORMATION
  Report Type: 
  Country: None (occurrence: None)
  Receive Date: 20050303
  Receipt Date: 20040212
  Transmission Date: 20050727
  Serious: Yes (Hospitalization, Disabling)
  Sender: FDA-Public Use
  Company Number: EG-ROCHE-358655

PATIENT
  Age: 45 Year
  Sex: Female
  Weight: 73 kg

DRUGS (5)
  1. PEG-INTERFERON ALFA 2A (RO 25-8310) [Suspect]
     Route: 058
     Dates: start: 20030528, end: 20040121
  2. RIBAVIRIN [Suspect]
     Route: 048
     Dates: start: 20030528, end: 20040114
  3. VITAMIN B COMPLEX CAP [Concomitant]
     Dates: start: 20040114, end: 20040121
  4. NEUROVITAN [Concomitant]
     Dates: start: 20040101, end: 20040121
  5. MULTIPLE VITAMIN [Concomitant]
     Dates: start: 20040114, end: 20040121

REACTIONS (4)
  - HAEMOLYTIC ANAEMIA [None]
  - LYMPHADENOPATHY [None]
  - PALPITATIONS [None]
  - TUBERCULOSIS [None]
